FAERS Safety Report 8535215-4 (Version None)
Quarter: 2012Q3

REPORT INFORMATION
  Report Type: 
  Country: None (occurrence: None)
  Receive Date: 20120724
  Receipt Date: 20120720
  Transmission Date: 20120928
  Serious: No
  Sender: FDA-Public Use
  Company Number: US-009507513-1207USA008379

PATIENT

DRUGS (2)
  1. TEMODAR [Suspect]
  2. ZOFRAN [Concomitant]
     Dosage: UNK

REACTIONS (1)
  - DEPRESSED MOOD [None]
